FAERS Safety Report 4943673-7 (Version None)
Quarter: 2006Q1

REPORT INFORMATION
  Report Type: 
  Country: None (occurrence: None)
  Receive Date: 20060314
  Receipt Date: 20050909
  Transmission Date: 20060701
  Serious: Yes (Hospitalization, Disabling)
  Sender: FDA-Public Use
  Company Number: US-MERCK-0509USA01681

PATIENT
  Age: 46 Year
  Sex: Female
  Weight: 95 kg

DRUGS (3)
  1. VIOXX [Suspect]
     Indication: OSTEOARTHRITIS
     Route: 048
     Dates: start: 20000101, end: 20040101
  2. ZOLOFT [Concomitant]
     Indication: DEPRESSION
     Route: 065
     Dates: start: 19980101, end: 20050101
  3. ASPIRIN [Concomitant]
     Route: 065
     Dates: start: 19990101

REACTIONS (12)
  - ACUTE MYOCARDIAL INFARCTION [None]
  - ANGINA PECTORIS [None]
  - BRADYCARDIA [None]
  - CHEST PAIN [None]
  - EOSINOPHILIA [None]
  - GASTRIC DISORDER [None]
  - GASTROOESOPHAGEAL REFLUX DISEASE [None]
  - HEPATITIS C [None]
  - HYPERTENSION [None]
  - LYMPHOCYTOSIS [None]
  - MIGRAINE [None]
  - SPINAL OSTEOARTHRITIS [None]
